FAERS Safety Report 8829641 (Version 1)
Quarter: 2012Q4

REPORT INFORMATION
  Report Type: Spontaneous
  Country: US (occurrence: None)
  Receive Date: 20121005
  Receipt Date: 20121005
  Transmission Date: 20130627
  Serious: Yes (Death)
  Sender: FDA-Public Use
  Company Number: None

PATIENT
  Age: 36 Year
  Sex: Male

DRUGS (16)
  1. NEULASTA 6MG AMGEN [Suspect]
     Indication: LIPOSARCOMA
     Route: 058
     Dates: start: 20120430, end: 20120611
  2. NEULASTA 6MG AMGEN [Suspect]
     Indication: NEUTROPENIA
     Route: 058
     Dates: start: 20120430, end: 20120611
  3. NEULASTA 6MG AMGEN [Suspect]
     Indication: LIPOSARCOMA
     Route: 058
     Dates: start: 20120702, end: 20120723
  4. NEULASTA 6MG AMGEN [Suspect]
     Indication: NEUTROPENIA
     Route: 058
     Dates: start: 20120702, end: 20120723
  5. CLINDAMYCIN [Concomitant]
  6. DEXAMETHASONE [Concomitant]
  7. DIPHENHYDRAMINE HCL [Concomitant]
  8. ENOXAPARIN [Concomitant]
  9. HALOPERIDOL [Concomitant]
  10. LORAZEPAM [Concomitant]
  11. BENADRYL [Concomitant]
  12. LIDOCAINE-PRILOCAINE (EMLA) [Concomitant]
  13. LORAZEPAM [Concomitant]
  14. MENTHOL-PHENOL (MUCOUS MEMBRANE LOZENGE) [Concomitant]
  15. OLANAZEPINE [Concomitant]
  16. EPIRUBICIN/IFOSFAMIDE [Concomitant]

REACTIONS (16)
  - Myalgia [None]
  - Dyspnoea [None]
  - Renal failure acute [None]
  - Blood lactic acid increased [None]
  - Leukocytosis [None]
  - Thrombocytopenia [None]
  - Bone pain [None]
  - Embolism [None]
  - Heart rate increased [None]
  - Tachypnoea [None]
  - Unresponsive to stimuli [None]
  - Pulseless electrical activity [None]
  - Blood creatine phosphokinase increased [None]
  - Aspartate aminotransferase increased [None]
  - Alanine aminotransferase increased [None]
  - Deep vein thrombosis [None]
